FAERS Safety Report 24044106 (Version 2)
Quarter: 2024Q3

REPORT INFORMATION
  Report Type: Spontaneous
  Country: US (occurrence: US)
  Receive Date: 20240703
  Receipt Date: 20240711
  Transmission Date: 20241016
  Serious: Yes (Hospitalization, Other)
  Sender: ALKEM
  Company Number: None

PATIENT
  Age: 38 Year
  Sex: Male

DRUGS (2)
  1. IBUPROFEN [Suspect]
     Active Substance: IBUPROFEN
     Indication: Pain
     Dosage: UNK
     Route: 065
  2. ACETAMINOPHEN [Suspect]
     Active Substance: ACETAMINOPHEN
     Indication: Pain
     Dosage: UNK
     Route: 065

REACTIONS (6)
  - Liver injury [Recovering/Resolving]
  - Bacteraemia [Recovering/Resolving]
  - Renal tubular necrosis [Recovering/Resolving]
  - Parvimonas micra infection [Recovering/Resolving]
  - Intentional product use issue [Unknown]
  - Toxicity to various agents [Unknown]
